FAERS Safety Report 10077173 (Version 3)
Quarter: 2014Q3

REPORT INFORMATION
  Report Type: Report from Study
  Country: JP (occurrence: JP)
  Receive Date: 20140414
  Receipt Date: 20140707
  Transmission Date: 20150326
  Serious: Yes (Death, Life-Threatening)
  Sender: FDA-Public Use
  Company Number: JP-PFIZER INC-2014102661

PATIENT
  Age: 24 Year
  Sex: Female

DRUGS (13)
  1. MUCOSTA [Concomitant]
     Active Substance: REBAMIPIDE
     Indication: DISEASE COMPLICATION
     Route: 048
  2. REVATIO [Suspect]
     Active Substance: SILDENAFIL CITRATE
     Indication: PORTAL HYPERTENSION
     Dosage: UNK
     Route: 048
     Dates: start: 20080529, end: 20081126
  3. REVATIO [Suspect]
     Active Substance: SILDENAFIL CITRATE
     Dosage: 20 MG, 3X/DAY
     Route: 048
     Dates: start: 20081127
  4. ALDACTONE [Concomitant]
     Active Substance: SPIRONOLACTONE
     Indication: DISEASE COMPLICATION
     Route: 048
  5. DORNER [Concomitant]
     Active Substance: BERAPROST SODIUM
     Dosage: UNK
     Route: 048
  6. LASIX [Concomitant]
     Active Substance: FUROSEMIDE
     Indication: DISEASE COMPLICATION
     Dosage: UNK
     Route: 048
  7. URSO [Concomitant]
     Active Substance: URSODIOL
     Indication: DISEASE COMPLICATION
     Dosage: UNK
     Route: 048
  8. CHOCOLA A [Concomitant]
     Indication: DISEASE COMPLICATION
     Route: 048
  9. MONILAC [Concomitant]
     Active Substance: LACTULOSE
     Indication: DISEASE COMPLICATION
     Route: 048
  10. JUVELA [Concomitant]
     Active Substance: .ALPHA.-TOCOPHEROL\RETINOL
     Indication: DISEASE COMPLICATION
     Route: 048
  11. BAKTAR [Concomitant]
     Active Substance: SULFAMETHOXAZOLE\TRIMETHOPRIM
     Indication: DISEASE COMPLICATION
     Route: 048
  12. GASTER [Concomitant]
     Active Substance: FAMOTIDINE
     Indication: DISEASE COMPLICATION
     Route: 048
  13. PHENOBAL [Concomitant]
     Active Substance: PHENOBARBITAL
     Indication: DISEASE COMPLICATION
     Route: 048

REACTIONS (2)
  - Death [Fatal]
  - Liver disorder [Unknown]

NARRATIVE: CASE EVENT DATE: 20100924
